FAERS Safety Report 6154879-6 (Version None)
Quarter: 2009Q2

REPORT INFORMATION
  Report Type: 
  Country: None (occurrence: None)
  Receive Date: 20090414
  Receipt Date: 20090316
  Transmission Date: 20091009
  Serious: Yes (Other)
  Sender: FDA-Public Use
  Company Number: FR-PFIZER INC-2009194773

PATIENT

DRUGS (1)
  1. AROMASINE [Suspect]
     Dosage: UNK

REACTIONS (1)
  - SJOGREN'S SYNDROME [None]
